FAERS Safety Report 18888811 (Version 1)
Quarter: 2021Q1

REPORT INFORMATION
  Report Type: Spontaneous
  Country: FR (occurrence: FR)
  Receive Date: 20210212
  Receipt Date: 20210212
  Transmission Date: 20210420
  Serious: Yes (Death, Other)
  Sender: FDA-Public Use
  Company Number: FR-SA-2021SA049272

PATIENT
  Age: 69 Year
  Sex: Male

DRUGS (6)
  1. PROTAMINE [Suspect]
     Active Substance: PROTAMINE
     Indication: PROPHYLAXIS
     Dates: start: 20210105
  2. ASPIRINE [Suspect]
     Active Substance: ASPIRIN
     Dosage: 160 U, QD
  3. HEPARIN SODIUM. [Suspect]
     Active Substance: HEPARIN SODIUM
     Indication: PRODUCT USED FOR UNKNOWN INDICATION
     Dosage: 18000 IU
     Dates: start: 20201216, end: 20210103
  4. HEPARIN SODIUM. [Suspect]
     Active Substance: HEPARIN SODIUM
     Indication: DEEP VEIN THROMBOSIS
     Dosage: UNK
     Dates: start: 20201223, end: 20210103
  5. HEPARIN SODIUM. [Suspect]
     Active Substance: HEPARIN SODIUM
     Dosage: UNK
     Dates: start: 20210105, end: 20210105
  6. LOVENOX [Suspect]
     Active Substance: ENOXAPARIN SODIUM
     Dosage: 400 MG, BID
     Dates: start: 20201216

REACTIONS (6)
  - Haemorrhagic stroke [Fatal]
  - Mouth haemorrhage [Fatal]
  - Blood loss anaemia [Fatal]
  - Mydriasis [Unknown]
  - Epistaxis [Fatal]
  - Interstitial lung disease [Unknown]

NARRATIVE: CASE EVENT DATE: 20201223
